FAERS Safety Report 24674272 (Version 2)
Quarter: 2025Q3

REPORT INFORMATION
  Report Type: Spontaneous
  Country: US (occurrence: US)
  Receive Date: 20241128
  Receipt Date: 20250827
  Transmission Date: 20251021
  Serious: No
  Sender: CELLTRION
  Company Number: US-CELLTRION INC.-2024US024616

PATIENT

DRUGS (2)
  1. YUFLYMA [Suspect]
     Active Substance: ADALIMUMAB-AATY
     Indication: Psoriatic arthropathy
     Dosage: 40 MG INJECTED SUBCUTANEOUSLY EVERY 2 WEEKS
     Route: 058
     Dates: start: 20240909
  2. YUFLYMA [Suspect]
     Active Substance: ADALIMUMAB-AATY
     Route: 058
     Dates: start: 20240909, end: 20250529

REACTIONS (4)
  - Inflammation [Not Recovered/Not Resolved]
  - Arthralgia [Not Recovered/Not Resolved]
  - Drug ineffective [Not Recovered/Not Resolved]
  - Intentional product use issue [Unknown]

NARRATIVE: CASE EVENT DATE: 20240909
